FAERS Safety Report 8819787 (Version 1)
Quarter: 2012Q4

REPORT INFORMATION
  Report Type: 
  Country: US (occurrence: US)
  Receive Date: 20121001
  Receipt Date: 20121001
  Transmission Date: 20130627
  Serious: Yes (Hospitalization, Other)
  Sender: FDA-Public Use
  Company Number: US-ROCHE-1130039

PATIENT
  Sex: Female

DRUGS (8)
  1. HERCEPTIN [Suspect]
     Indication: BREAST CANCER
     Dosage: loading dose
     Route: 065
     Dates: start: 19991206
  2. HERCEPTIN [Suspect]
     Dosage: maintenance dose
     Route: 065
  3. TAXOL [Concomitant]
     Route: 065
  4. BENADRYL [Concomitant]
     Route: 065
  5. DECADRON [Concomitant]
     Route: 065
  6. TAGAMET [Concomitant]
     Route: 065
  7. ADENOSINE [Concomitant]
     Route: 065
  8. LOPRESSOR [Concomitant]
     Route: 065

REACTIONS (9)
  - Supraventricular tachycardia [Unknown]
  - Osteoarthritis [Unknown]
  - Urticaria [Unknown]
  - Neutropenia [Unknown]
  - Thrombocytopenia [Unknown]
  - Hypertension [Unknown]
  - Renal failure acute [Unknown]
  - Dyspnoea [Unknown]
  - Hypoaesthesia [Unknown]
